FAERS Safety Report 22281935 (Version 1)
Quarter: 2023Q2

REPORT INFORMATION
  Report Type: Report from Study
  Country: US (occurrence: US)
  Receive Date: 20230504
  Receipt Date: 20230504
  Transmission Date: 20230722
  Serious: Yes (Death)
  Sender: FDA-Public Use
  Company Number: US-ALNYLAM PHARMACEUTICALS, INC.-ALN-2023-001924

PATIENT

DRUGS (1)
  1. ONPATTRO [Suspect]
     Active Substance: PATISIRAN SODIUM
     Indication: Hereditary neuropathic amyloidosis
     Dosage: UNK, EVERY 2 WEEKS
     Route: 042
     Dates: start: 20220627, end: 20220627

REACTIONS (4)
  - Death [Fatal]
  - Cardiac disorder [Unknown]
  - Diabetes mellitus [Unknown]
  - Wrong schedule [Unknown]

NARRATIVE: CASE EVENT DATE: 20230210
